FAERS Safety Report 5432546-1 (Version None)
Quarter: 2007Q3

REPORT INFORMATION
  Report Type: 
  Country: None (occurrence: None)
  Receive Date: 20070831
  Receipt Date: 20070822
  Transmission Date: 20080115
  Serious: Yes (Hospitalization)
  Sender: FDA-Public Use
  Company Number: US-JNJFOC-20070804650

PATIENT
  Sex: Female
  Weight: 81.65 kg

DRUGS (5)
  1. REMICADE [Suspect]
     Indication: CROHN'S DISEASE
     Route: 042
  2. AZATHIOPRINE [Concomitant]
  3. PREDNISONE [Concomitant]
  4. LEXOPRO [Concomitant]
  5. DEPAKATE [Concomitant]

REACTIONS (1)
  - CYTOMEGALOVIRUS INFECTION [None]
